FAERS Safety Report 10296715 (Version 6)
Quarter: 2017Q2

REPORT INFORMATION
  Report Type: Spontaneous
  Country: US (occurrence: US)
  Receive Date: 20140711
  Receipt Date: 20170412
  Transmission Date: 20170829
  Serious: Yes (Hospitalization)
  Sender: FDA-Public Use
  Company Number: US-PFIZER INC-2014188186

PATIENT
  Age: 70 Year
  Sex: Male
  Weight: 75 kg

DRUGS (5)
  1. TAMSULOSIN [Concomitant]
     Active Substance: TAMSULOSIN
     Indication: BLADDER DISORDER
     Dosage: 4 MG, UNK
     Route: 048
  2. SUTENT [Suspect]
     Active Substance: SUNITINIB MALATE
     Dosage: 50 MG, ONCE DAILY, 4 WEEKS ON FOLLOWED BY 2 WEEKS OFF
     Route: 048
     Dates: start: 20150505
  3. SUTENT [Suspect]
     Active Substance: SUNITINIB MALATE
     Dosage: 50MG DAILY FOR 4 WEEKS THEN OF 2 WEEKS)
  4. SUTENT [Suspect]
     Active Substance: SUNITINIB MALATE
     Indication: RENAL CANCER
     Dosage: 50 MG, ONCE DAILY, 4 WEEKS ON FOLLOWED BY 2 WEEKS OFF
     Route: 048
     Dates: start: 201401, end: 20150504
  5. SUTENT [Suspect]
     Active Substance: SUNITINIB MALATE
     Dosage: 50MG DAILY FOR 4 WEEKS THEN OF 2 WEEKS)

REACTIONS (5)
  - Diarrhoea [Not Recovered/Not Resolved]
  - Dysphagia [Recovered/Resolved]
  - Diarrhoea [Recovered/Resolved]
  - Urinary incontinence [Unknown]
  - Blood urine present [Unknown]

NARRATIVE: CASE EVENT DATE: 201401
